FAERS Safety Report 7704206-5 (Version None)
Quarter: 2011Q3

REPORT INFORMATION
  Report Type: 
  Country: None (occurrence: None)
  Receive Date: 20110823
  Receipt Date: 20110810
  Transmission Date: 20111222
  Serious: Yes (Hospitalization)
  Sender: FDA-Public Use
  Company Number: KR-BAYER-2011-012457

PATIENT
  Age: 48 Year
  Sex: Male
  Weight: 54.6 kg

DRUGS (107)
  1. SORAFENIB (RAF KINASE INHIBITOR) [Suspect]
     Dosage: 400 MG, QD
     Route: 048
     Dates: start: 20110214, end: 20110214
  2. SORAFENIB (RAF KINASE INHIBITOR) [Suspect]
     Dosage: 400 MG, BID
     Route: 048
     Dates: start: 20110303, end: 20110419
  3. CEFOTAXIME [Concomitant]
     Indication: PROPHYLAXIS
     Dosage: 2 G, TID
     Route: 042
     Dates: start: 20101216, end: 20110105
  4. ADALAT [Concomitant]
     Dosage: 30 MG, QD
     Dates: start: 20110522, end: 20110522
  5. UCERAX [Concomitant]
     Indication: PRURITUS
     Dosage: 25 MG, TID
     Dates: start: 20110201, end: 20110313
  6. ALBUMIN (HUMAN) [Concomitant]
     Dosage: 100 ML, QD
     Route: 042
     Dates: start: 20110503, end: 20110504
  7. DESOWEN [Concomitant]
     Indication: PRURITUS
     Dosage: UNK UNK, PRN
     Route: 061
     Dates: start: 20110215, end: 20110424
  8. TRAMADOL HCL [Concomitant]
     Indication: ABDOMINAL PAIN
     Dosage: 50 MG, QD
     Route: 042
     Dates: start: 20110405, end: 20110405
  9. ERDOSTEINE [Concomitant]
     Dosage: 300 MG, TID
     Route: 048
     Dates: start: 20110429
  10. TRIAZOLAM [Concomitant]
     Indication: ANXIETY
     Dosage: 0.25 MG, QD
     Route: 048
     Dates: start: 20110502, end: 20110502
  11. REMICUT [Concomitant]
     Dosage: 1 MG, BID
     Dates: start: 20110504
  12. K CONTIN [Concomitant]
     Indication: PROPHYLAXIS
     Dosage: 600 MG, TID
     Route: 048
     Dates: start: 20110504, end: 20110519
  13. KYTRIL [Concomitant]
     Indication: NAUSEA
     Dosage: 1 MG, QD
     Route: 048
     Dates: start: 20110517, end: 20110524
  14. MEK INHIBITOR (DIHYDROXYPROP-DIFLU-METHOXYPHEN-CYCLOPROPA-SULFAMI) [Suspect]
     Dosage: 50 MG, QD
     Route: 048
     Dates: start: 20110301, end: 20110302
  15. SORAFENIB (RAF KINASE INHIBITOR) [Suspect]
     Dosage: 600 MG (200 MG/400 MG), QD
     Route: 048
     Dates: start: 20110205, end: 20110205
  16. DURAGESIC-100 [Concomitant]
     Indication: ABDOMINAL PAIN
     Dosage: 25 ?G, BIW
     Route: 062
     Dates: start: 20101214, end: 20110101
  17. ACTIQ [Concomitant]
     Dosage: 0.8 MG, QID
     Route: 048
     Dates: start: 20110302
  18. SILYMARIN [Concomitant]
     Indication: DECREASED APPETITE
     Dosage: 500 ML, QOD
     Route: 042
     Dates: start: 20101212, end: 20110101
  19. OXYCODONE HYDROCHLORIDE [Concomitant]
     Dosage: 10 MG, BID
     Route: 048
     Dates: start: 20101227
  20. ULTRAVIST 150 [Concomitant]
     Indication: COMPUTERISED TOMOGRAM
     Dosage: 140 ML, QD
     Route: 042
     Dates: start: 20110105, end: 20110105
  21. LASIX [Concomitant]
     Indication: OEDEMA
     Dosage: 20 MG, BID
     Route: 048
     Dates: start: 20110131, end: 20110205
  22. LASIX [Concomitant]
     Dosage: 1 ML, BID
     Dates: start: 20110503, end: 20110504
  23. ALBUMIN (HUMAN) [Concomitant]
     Indication: OEDEMA
     Dosage: 100 ML, QD
     Route: 042
     Dates: start: 20110209, end: 20110209
  24. TRAMADOL HCL [Concomitant]
     Dosage: 50 MG, TID
     Route: 042
     Dates: start: 20110406, end: 20110425
  25. TORSEMIDE [Concomitant]
     Dosage: 10 MG, QD
     Dates: start: 20110511
  26. BANAN [Concomitant]
     Dosage: 200 MG, BID
     Dates: start: 20110504, end: 20110506
  27. MEK INHIBITOR (DIHYDROXYPROP-DIFLU-METHOXYPHEN-CYCLOPROPA-SULFAMI) [Suspect]
     Dosage: 30 MG, QD
     Route: 048
     Dates: start: 20110516, end: 20110516
  28. SORAFENIB (RAF KINASE INHIBITOR) [Suspect]
     Dosage: 400 MG, BID
     Route: 048
     Dates: start: 20110201, end: 20110204
  29. SORAFENIB (RAF KINASE INHIBITOR) [Suspect]
     Dosage: 400 MG, QD
     Route: 048
     Dates: start: 20110516
  30. BIPHENYL DICARBOXYLATE [Concomitant]
     Indication: HEPATITIS
     Dosage: 12.5 MG, TID
     Route: 048
     Dates: start: 20101214, end: 20110205
  31. LEGALON [Concomitant]
     Dosage: 140 MG, TID
     Route: 048
     Dates: start: 20110207
  32. ADALAT [Concomitant]
     Indication: HYPERTENSION
     Dosage: 30 MG, QD
     Route: 048
     Dates: start: 20110113, end: 20110113
  33. ZOLPIDEM [Concomitant]
     Indication: PROPHYLAXIS
     Dosage: 12.5 MG, QD
     Route: 048
     Dates: start: 20110124, end: 20110205
  34. ZOLPIDEM [Concomitant]
     Dosage: 12.5 MG, QD
     Route: 048
     Dates: start: 20110207
  35. RED BLOOD CELLS [Concomitant]
     Indication: ANAEMIA
     Dosage: 400 ML, BID
     Route: 042
     Dates: start: 20110213, end: 20110213
  36. TANTUM [Concomitant]
     Dosage: UNK UNK, PRN
     Dates: start: 20110424
  37. LACTITOL [Concomitant]
     Dosage: 20 G, BID
     Route: 048
     Dates: start: 20110429
  38. TORSEMIDE [Concomitant]
     Dosage: 5 MG, QD
     Dates: start: 20110511, end: 20110518
  39. REMICUT [Concomitant]
     Indication: ACUTE SINUSITIS
     Dosage: 1 MG, QD
     Route: 048
     Dates: start: 20110503, end: 20110503
  40. SPANTOL [Concomitant]
     Dosage: 80 MG, TID
     Route: 048
     Dates: start: 20110518
  41. MEK INHIBITOR (DIHYDROXYPROP-DIFLU-METHOXYPHEN-CYCLOPROPA-SULFAMI) [Suspect]
     Dosage: 50 MG, QD
     Route: 048
     Dates: start: 20110214, end: 20110214
  42. MEK INHIBITOR (DIHYDROXYPROP-DIFLU-METHOXYPHEN-CYCLOPROPA-SULFAMI) [Suspect]
     Dosage: 30 MG, BID
     Route: 048
     Dates: start: 20110517
  43. SORAFENIB (RAF KINASE INHIBITOR) [Suspect]
     Indication: HEPATIC NEOPLASM MALIGNANT
     Dosage: 200/400 MG, QD
     Route: 048
     Dates: start: 20110110, end: 20110131
  44. SORAFENIB (RAF KINASE INHIBITOR) [Suspect]
     Dosage: 400 MG, QD
     Route: 048
     Dates: start: 20110301, end: 20110302
  45. DURAGESIC-100 [Concomitant]
     Dosage: 25 ?G, Q72HR
     Dates: start: 20110514
  46. BIPHENYL DICARBOXYLATE [Concomitant]
     Dosage: 12.5 MG, TID
     Route: 048
     Dates: start: 20110207
  47. OXYCODONE HYDROCHLORIDE [Concomitant]
     Indication: ABDOMINAL PAIN
     Dosage: 10 MG, QD
     Route: 048
     Dates: start: 20101226, end: 20101226
  48. LIPID EMULSION [Concomitant]
     Indication: DECREASED APPETITE
     Dosage: 500 ML, QOD
     Route: 042
     Dates: start: 20110104, end: 20110106
  49. ADALAT [Concomitant]
     Dosage: 30 MG, BID
     Route: 048
     Dates: start: 20110114, end: 20110205
  50. DIOVAN [Concomitant]
     Dosage: 40 MG, QD
     Route: 048
     Dates: start: 20110207
  51. ALDACTONE [Concomitant]
     Indication: OEDEMA
     Dosage: 1 DF, BID
     Route: 048
     Dates: start: 20110131, end: 20110205
  52. ALDACTONE [Concomitant]
     Dosage: 50 MG, BID
     Dates: start: 20110511
  53. LASIX [Concomitant]
     Dosage: 10 MG, BID
     Dates: start: 20110511, end: 20110511
  54. ALBIS [Concomitant]
     Indication: HEPATITIS
     Dosage: 1 T, BID
     Route: 048
     Dates: start: 20110209, end: 20110209
  55. METOCLOPRAMIDE HYDROCHLORIDE [Concomitant]
     Indication: VOMITING
     Dosage: 10 MG, QD
     Route: 042
     Dates: start: 20110409, end: 20110416
  56. SEROQUEL [Concomitant]
     Dosage: 50 MG, QD
     Route: 048
     Dates: start: 20110503
  57. Q-ROKEL [Concomitant]
     Indication: ANXIETY
     Dosage: 25 MG, QD
     Route: 048
     Dates: start: 20110425, end: 20110425
  58. ERDOSTEINE [Concomitant]
     Indication: PRODUCTIVE COUGH
     Dosage: 300 MG, QD
     Route: 048
     Dates: start: 20110428, end: 20110428
  59. REMERON [Concomitant]
     Indication: ANXIETY
     Dosage: 7.5 MG, QD
     Route: 048
     Dates: start: 20110430, end: 20110430
  60. NORVASC [Concomitant]
     Indication: HYPERTENSION
     Dosage: 5 MG, QD
     Route: 048
     Dates: start: 20110523
  61. MEK INHIBITOR (DIHYDROXYPROP-DIFLU-METHOXYPHEN-CYCLOPROPA-SULFAMI) [Suspect]
     Dosage: 50 MG, BID
     Route: 048
     Dates: start: 20110303, end: 20110419
  62. LIVACT [AMINO ACIDS NOS] [Concomitant]
     Indication: PROPHYLAXIS
     Dosage: 4.15 G, TID
     Route: 048
     Dates: start: 20101220, end: 20110205
  63. MORPHINE SULFATE [Concomitant]
     Indication: ABDOMINAL PAIN
     Dosage: 5 ML, QD
     Route: 042
     Dates: start: 20101230, end: 20101230
  64. RED BLOOD CELLS [Concomitant]
     Dosage: 400 ML, BID
     Route: 042
     Dates: start: 20110511, end: 20110511
  65. SEROQUEL [Concomitant]
     Indication: ANXIETY
     Dosage: 50 MG, QD
     Route: 048
     Dates: start: 20110424, end: 20110424
  66. ERDOSTEINE [Concomitant]
     Dosage: 300 MG, TID
     Route: 048
     Dates: start: 20110520
  67. SPANTOL [Concomitant]
     Indication: NAUSEA
     Dosage: 80 MG, QD
     Route: 048
     Dates: start: 20110517, end: 20110517
  68. MEK INHIBITOR (DIHYDROXYPROP-DIFLU-METHOXYPHEN-CYCLOPROPA-SULFAMI) [Suspect]
     Indication: HEPATIC NEOPLASM MALIGNANT
     Dosage: 50 MG, BID
     Route: 048
     Dates: start: 20110110, end: 20110130
  69. SORAFENIB (RAF KINASE INHIBITOR) [Suspect]
     Dosage: 400 MG, QD
     Route: 048
     Dates: start: 20110420, end: 20110420
  70. MEGESTROL ACETATE [Concomitant]
     Dosage: 20 ML, QD
     Route: 048
     Dates: start: 20110207
  71. DURAGESIC-100 [Concomitant]
     Dosage: 25 ?G, BIW
     Route: 062
     Dates: start: 20110105, end: 20110123
  72. MUTERAN [Concomitant]
     Dosage: 200 MG, TID
     Route: 048
     Dates: start: 20110207, end: 20110313
  73. ALDACTONE [Concomitant]
     Dosage: 1 DF, BID
     Route: 048
     Dates: start: 20110207
  74. ALLEGRA [Concomitant]
     Indication: PRURITUS
     Dosage: 180 MG, QD
     Dates: start: 20110215, end: 20110313
  75. NASONEX [Concomitant]
     Indication: RHINITIS
     Dosage: UNK UNK, PRN
     Route: 045
  76. XANAX [Concomitant]
     Indication: ANXIETY
     Dosage: 0.25 MG, QD
     Route: 048
     Dates: start: 20110427, end: 20110427
  77. TORSEMIDE [Concomitant]
     Indication: OEDEMA
     Dosage: 5 MG, BID
     Route: 048
     Dates: start: 20110503, end: 20110510
  78. BANAN [Concomitant]
     Dosage: 200 MG, BID
     Dates: start: 20110509
  79. MEK INHIBITOR (DIHYDROXYPROP-DIFLU-METHOXYPHEN-CYCLOPROPA-SULFAMI) [Suspect]
     Dosage: 50 MG, BID
     Dates: start: 20110215, end: 20110228
  80. SORAFENIB (RAF KINASE INHIBITOR) [Suspect]
     Dosage: 400 MG, BID
     Dates: start: 20110215, end: 20110228
  81. MEGESTROL ACETATE [Concomitant]
     Indication: DECREASED APPETITE
     Dosage: 20 ML, QD
     Route: 048
     Dates: start: 20101219, end: 20110205
  82. LEGALON [Concomitant]
     Indication: HEPATITIS
     Dosage: 140 MG, TID
     Route: 048
     Dates: start: 20101214, end: 20110205
  83. ACTIQ [Concomitant]
     Indication: ABDOMINAL PAIN
     Dosage: 0.6 MG, TID
     Route: 048
     Dates: start: 20101203, end: 20101222
  84. LIVACT [AMINO ACIDS NOS] [Concomitant]
     Dosage: 4.15 G, TID
     Route: 048
     Dates: start: 20110207
  85. SILYMARIN [Concomitant]
     Dosage: 500 ML, QD
     Route: 042
     Dates: start: 20110102, end: 20110102
  86. MORPHINE SULFATE [Concomitant]
     Dosage: 5 ML, QD
     Route: 042
     Dates: start: 20110101, end: 20110102
  87. ADALAT [Concomitant]
     Dosage: 30 MG, BID
     Route: 048
     Dates: start: 20110207
  88. PANTOPRAZOLE SODIUM [Concomitant]
     Indication: GASTRIC ULCER
     Dosage: 20 MG, QD
     Route: 048
     Dates: start: 20110314
  89. METOCLOPRAMIDE HYDROCHLORIDE [Concomitant]
     Dosage: 10 MG, TID
     Route: 042
     Dates: start: 20110425
  90. BARACLUDE [Concomitant]
     Indication: HEPATITIS B
     Dosage: 0.5 MG, QD
     Route: 048
     Dates: start: 20110427
  91. MEGESTROL ACETATE [Concomitant]
     Dosage: 20 ML, QD
     Route: 048
     Dates: start: 20110517
  92. DURAGESIC-100 [Concomitant]
     Dosage: 12.5 ?G, BIW
     Route: 062
     Dates: start: 20110124
  93. MUTERAN [Concomitant]
     Indication: PRODUCTIVE COUGH
     Dosage: 200 MG, TID
     Route: 048
     Dates: start: 20101214, end: 20110205
  94. ACTIQ [Concomitant]
     Dosage: 0.8 MG, QID
     Route: 048
     Dates: start: 20101223
  95. HEPATAMINE [Concomitant]
     Indication: DECREASED APPETITE
     Dosage: 500 ML, QOD
     Route: 042
     Dates: start: 20101217, end: 20101231
  96. HEPATAMINE [Concomitant]
     Dosage: 500 ML, QD
     Route: 042
     Dates: start: 20110207, end: 20110207
  97. HEPATAMINE [Concomitant]
     Dosage: 500 ML, QD
     Route: 042
     Dates: start: 20110503, end: 20110503
  98. FREAMINE [Concomitant]
     Indication: DECREASED APPETITE
     Dosage: 500 ML, QOD
     Route: 042
     Dates: start: 20110103, end: 20110107
  99. ULTRAVIST 150 [Concomitant]
     Dosage: 140 ML, QD
     Route: 042
     Dates: start: 20110511, end: 20110511
  100. DIOVAN [Concomitant]
     Indication: HYPERTENSION
     Dosage: 40 MG, QD
     Route: 048
     Dates: start: 20110113, end: 20110205
  101. LASIX [Concomitant]
     Dosage: 20 MG, BID
     Route: 048
     Dates: start: 20110207
  102. POFOL [Concomitant]
     Indication: COMPUTERISED TOMOGRAM
     Dosage: 80 MG, QD
     Dates: start: 20110214, end: 20110214
  103. LACTITOL [Concomitant]
     Indication: CONSTIPATION
     Dosage: 20 G, QD
     Route: 048
     Dates: start: 20110428, end: 20110428
  104. BANAN [Concomitant]
     Indication: ACUTE SINUSITIS
     Dosage: 200 MG, QD
     Route: 048
     Dates: start: 20110503, end: 20110503
  105. AMPICILLIN SODIUM/SULBACTAM SODIUM [Concomitant]
     Indication: ACUTE SINUSITIS
     Dosage: 3 G, QID
     Route: 042
     Dates: start: 20110507, end: 20110508
  106. AMPICILLIN SODIUM/SULBACTAM SODIUM [Concomitant]
     Dosage: 3 G, QD
     Route: 048
     Dates: start: 20110509, end: 20110509
  107. DEPAS [Concomitant]
     Indication: ANXIETY
     Dosage: 0.5 MG, QD
     Route: 048
     Dates: start: 20110507

REACTIONS (2)
  - DIARRHOEA [None]
  - NEUROMYOPATHY [None]
